FAERS Safety Report 10375342 (Version 2)
Quarter: 2014Q4

REPORT INFORMATION
  Report Type: Report from Study
  Country: BR (occurrence: BR)
  Receive Date: 20140811
  Receipt Date: 20141106
  Transmission Date: 20150528
  Serious: Yes (Hospitalization, Other)
  Sender: FDA-Public Use
  Company Number: BR-ABBVIE-14K-020-1268857-00

PATIENT
  Age: 60 Year
  Sex: Female
  Weight: 81 kg

DRUGS (2)
  1. HUMIRA [Suspect]
     Active Substance: ADALIMUMAB
     Indication: RHEUMATOID ARTHRITIS
     Route: 058
     Dates: start: 20100712, end: 20121227
  2. METHOTREXATE [Concomitant]
     Active Substance: METHOTREXATE
     Indication: ARTHRITIS
     Dosage: ON SATURDAYS
     Route: 048
     Dates: start: 20130301

REACTIONS (6)
  - Osteoporosis [Unknown]
  - Abdominal distension [Recovered/Resolved]
  - Paraesthesia [Unknown]
  - Pulmonary tuberculosis [Recovered/Resolved]
  - Pain [Unknown]
  - Skin discolouration [Unknown]

NARRATIVE: CASE EVENT DATE: 20121220
